FAERS Safety Report 16566614 (Version 1)
Quarter: 2019Q3

REPORT INFORMATION
  Report Type: Spontaneous
  Country: US (occurrence: US)
  Receive Date: 20190712
  Receipt Date: 20190712
  Transmission Date: 20191004
  Serious: Yes (Hospitalization, Other)
  Sender: FDA-Public Use
  Company Number: US-MYLANLABS-2019M1064763

PATIENT
  Age: 56 Year
  Sex: Female

DRUGS (4)
  1. LEUCOVORIN                         /00566701/ [Suspect]
     Active Substance: LEUCOVORIN
     Indication: DUCTAL ADENOCARCINOMA OF PANCREAS
     Dosage: UNK
     Route: 065
     Dates: start: 201603, end: 201608
  2. FLUOROURACIL. [Suspect]
     Active Substance: FLUOROURACIL
     Indication: DUCTAL ADENOCARCINOMA OF PANCREAS
     Dosage: UNK
     Route: 065
     Dates: start: 201603
  3. IRINOTECAN [Suspect]
     Active Substance: IRINOTECAN
     Indication: DUCTAL ADENOCARCINOMA OF PANCREAS
     Dosage: UNK
     Route: 065
     Dates: start: 201603, end: 201608
  4. OXALIPLATIN. [Suspect]
     Active Substance: OXALIPLATIN
     Indication: DUCTAL ADENOCARCINOMA OF PANCREAS
     Dosage: UNK
     Route: 065
     Dates: start: 201603

REACTIONS (9)
  - Dehydration [Unknown]
  - Diarrhoea [Unknown]
  - Hypotension [Unknown]
  - Nausea [Unknown]
  - Clostridium difficile colitis [Unknown]
  - Vomiting [Unknown]
  - Delirium [Unknown]
  - Syncope [Unknown]
  - Mucosal inflammation [Unknown]

NARRATIVE: CASE EVENT DATE: 201606
